FAERS Safety Report 9408644 (Version 3)
Quarter: 2013Q3

REPORT INFORMATION
  Report Type: Spontaneous
  Country: US (occurrence: US)
  Receive Date: 20130718
  Receipt Date: 20130904
  Transmission Date: 20140515
  Serious: Yes (Other)
  Sender: FDA-Public Use
  Company Number: US-ALLERGAN-1310441US

PATIENT
  Age: 81 Year
  Sex: Female

DRUGS (2)
  1. REFRESH TEARS [Suspect]
     Indication: DRY EYE
     Dosage: 2 DROPS IN EACH EYE, ONCE A DAY
     Route: 047
     Dates: start: 201210
  2. METFORMIN [Concomitant]
     Indication: DIABETES MELLITUS
     Dosage: 1 DF, TWICE A DAY
     Route: 048
     Dates: start: 2003

REACTIONS (1)
  - Basal cell carcinoma [Recovered/Resolved]
